FAERS Safety Report 13291152 (Version 1)
Quarter: 2017Q1

REPORT INFORMATION
  Report Type: Spontaneous
  Country: US (occurrence: US)
  Receive Date: 20170302
  Receipt Date: 20170302
  Transmission Date: 20170428
  Serious: No
  Sender: FDA-Public Use
  Company Number: US-PERRIGO-16US013636

PATIENT
  Age: 71 Year
  Sex: Male
  Weight: 113.38 kg

DRUGS (1)
  1. LOPERAMIDE HYDROCHLORIDE. [Suspect]
     Active Substance: LOPERAMIDE HYDROCHLORIDE
     Indication: DIARRHOEA
     Dosage: 4 MG AFTER 1ST LOOSE STOOL, 2 MG AFTER 2 SUBSEQUENT LOOSE STOOLS, QD
     Route: 048
     Dates: start: 20160209

REACTIONS (2)
  - Incorrect drug administration duration [Unknown]
  - Drug effect incomplete [Unknown]

NARRATIVE: CASE EVENT DATE: 20160209
